FAERS Safety Report 11495938 (Version 1)
Quarter: 2015Q3

REPORT INFORMATION
  Report Type: Spontaneous
  Country: US (occurrence: US)
  Receive Date: 20150911
  Receipt Date: 20150911
  Transmission Date: 20151125
  Serious: Yes (Congenital Anomaly, Other)
  Sender: FDA-Public Use
  Company Number: US-GLAXOSMITHKLINE INC.-US2015GSK129968

PATIENT
  Age: 8 Month
  Sex: Female

DRUGS (2)
  1. ONDANSETRON [Suspect]
     Active Substance: ONDANSETRON
     Indication: VOMITING IN PREGNANCY
     Route: 064
  2. ONDANSETRON [Suspect]
     Active Substance: ONDANSETRON
     Indication: NAUSEA

REACTIONS (6)
  - Foetal exposure during pregnancy [Unknown]
  - Atrial septal defect [Unknown]
  - Congenital cardiovascular anomaly [Unknown]
  - Congenital cleft hand [Unknown]
  - Low birth weight baby [Unknown]
  - Jaundice neonatal [Unknown]
